FAERS Safety Report 6434714-9 (Version None)
Quarter: 2009Q4

REPORT INFORMATION
  Report Type: 
  Country: None (occurrence: None)
  Receive Date: 20091110
  Receipt Date: 20091030
  Transmission Date: 20100525
  Serious: Yes (Hospitalization)
  Sender: FDA-Public Use
  Company Number: GXKR2009TW11989

PATIENT
  Age: 86 Year
  Sex: Male

DRUGS (3)
  1. ACETYLSALICYLIC ACID SRT [Suspect]
     Indication: ANTICOAGULANT THERAPY
     Dosage: 100 MG, QW2
     Route: 065
  2. WARFARIN (NGX) [Suspect]
     Indication: ANTICOAGULANT THERAPY
     Dosage: 2.5 MG, QD
     Route: 065
  3. BISOPROLOL FUMARATE [Concomitant]
     Indication: BLOOD PRESSURE MANAGEMENT
     Dosage: 5 MG, QD
     Route: 065

REACTIONS (7)
  - BLINDNESS UNILATERAL [None]
  - CHOROIDAL HAEMORRHAGE [None]
  - EYE EXCISION [None]
  - EYE PAIN [None]
  - HEADACHE [None]
  - INTRAOCULAR PRESSURE INCREASED [None]
  - SCLERAL OPERATION [None]
